FAERS Safety Report 4991034-7 (Version None)
Quarter: 2006Q2

REPORT INFORMATION
  Report Type: 
  Country: None (occurrence: None)
  Receive Date: 20060428
  Receipt Date: 20060327
  Transmission Date: 20061013
  Serious: Yes (Hospitalization)
  Sender: FDA-Public Use
  Company Number: 2006BH006619

PATIENT
  Age: 59 Year
  Sex: Female

DRUGS (19)
  1. DIANEAL [Suspect]
     Indication: RENAL FAILURE CHRONIC
     Dosage: 2 L; 4X A DAY; IP
     Route: 033
     Dates: end: 20051122
  2. ASPIRIN [Concomitant]
  3. EPOGEN [Concomitant]
  4. VITAMIN B6 [Concomitant]
  5. BUMEX [Concomitant]
  6. PHOSLO [Concomitant]
  7. CHRONULAC [Concomitant]
  8. HUMULIN 70/30 [Concomitant]
  9. NEURONTIN [Concomitant]
  10. ZOCOR [Concomitant]
  11. ZOLOFT [Concomitant]
  12. DAILY VITA W/ZINC [Concomitant]
  13. AVANDIA [Concomitant]
  14. ARTICIFIAL TEARS [Concomitant]
  15. ALPHAGAN [Concomitant]
  16. TRUSOFT [Concomitant]
  17. REGLAN [Concomitant]
  18. GENTAMICIN [Concomitant]
  19. ROCALTROL [Concomitant]

REACTIONS (4)
  - PERITONITIS [None]
  - RED BLOOD CELL COUNT DECREASED [None]
  - SEPSIS [None]
  - WHITE BLOOD CELL COUNT DECREASED [None]
